FAERS Safety Report 9642736 (Version 2)
Quarter: 2013Q4

REPORT INFORMATION
  Report Type: Spontaneous
  Country: AU (occurrence: AU)
  Receive Date: 20131024
  Receipt Date: 20131024
  Transmission Date: 20140711
  Serious: Yes (Other)
  Sender: FDA-Public Use
  Company Number: AU-ELI_LILLY_AND_COMPANY-AU201310001407

PATIENT
  Age: 67 Year
  Sex: Female

DRUGS (1)
  1. FORTEO [Suspect]
     Indication: OSTEOPOROSIS
     Dosage: UNK UNK, UNKNOWN
     Route: 058
     Dates: start: 201309

REACTIONS (6)
  - Muscle abscess [Unknown]
  - Red blood cell count decreased [Unknown]
  - Dizziness [Unknown]
  - Neutrophil count increased [Unknown]
  - Arthralgia [Unknown]
  - Nausea [Unknown]
